FAERS Safety Report 11192492 (Version 1)
Quarter: 2015Q2

REPORT INFORMATION
  Report Type: Spontaneous
  Country: US (occurrence: US)
  Receive Date: 20150616
  Receipt Date: 20150616
  Transmission Date: 20150821
  Serious: No
  Sender: FDA-Public Use
  Company Number: US-ELI_LILLY_AND_COMPANY-US201505007670

PATIENT
  Age: 77 Year
  Sex: Male

DRUGS (1)
  1. EFFIENT [Suspect]
     Active Substance: PRASUGREL HYDROCHLORIDE
     Indication: RETINAL ARTERY OCCLUSION
     Dosage: 10 MG, QD
     Route: 065

REACTIONS (2)
  - Off label use [Unknown]
  - Haemorrhage [Unknown]
